FAERS Safety Report 7797285-0 (Version None)
Quarter: 2011Q4

REPORT INFORMATION
  Report Type: 
  Country: None (occurrence: None)
  Receive Date: 20111005
  Receipt Date: 20110929
  Transmission Date: 20120403
  Serious: Yes (Hospitalization)
  Sender: FDA-Public Use
  Company Number: PHHY2011US16105

PATIENT
  Sex: Female
  Weight: 53 kg

DRUGS (11)
  1. PRILOSEC [Concomitant]
  2. MIRALAX [Concomitant]
  3. LEVAQUIN [Concomitant]
  4. ZONEGRAN [Concomitant]
  5. TRILEPTAL [Concomitant]
  6. PREDNISONE [Concomitant]
  7. ASCORBIC ACID [Concomitant]
  8. EXJADE [Suspect]
     Indication: SICKLE CELL ANAEMIA
     Dosage: 1500 MG DAILY
     Route: 048
     Dates: start: 20080201
  9. CALCIUM CARBONATE [Concomitant]
  10. VITAMIN D [Concomitant]
  11. KEPPRA [Concomitant]

REACTIONS (7)
  - CONSTIPATION [None]
  - BACK PAIN [None]
  - SICKLE CELL ANAEMIA WITH CRISIS [None]
  - PNEUMONIA [None]
  - MUSCULOSKELETAL CHEST PAIN [None]
  - HEPATOMEGALY [None]
  - DIARRHOEA [None]
